FAERS Safety Report 5622087-0 (Version None)
Quarter: 2008Q1

REPORT INFORMATION
  Report Type: 
  Country: None (occurrence: None)
  Receive Date: 20080211
  Receipt Date: 20080204
  Transmission Date: 20080703
  Serious: Yes (Hospitalization)
  Sender: FDA-Public Use
  Company Number: US-BRISTOL-MYERS SQUIBB COMPANY-14063606

PATIENT
  Age: 51 Year
  Sex: Male

DRUGS (9)
  1. CETUXIMAB [Suspect]
     Indication: PANCREATIC CARCINOMA
     Route: 042
     Dates: start: 20071211, end: 20071211
  2. GEMCITABINE [Suspect]
     Indication: PANCREATIC CARCINOMA
     Route: 042
     Dates: start: 20071211, end: 20071211
  3. OXALIPLATIN [Suspect]
     Indication: PANCREATIC CARCINOMA
     Route: 042
     Dates: start: 20071211, end: 20071211
  4. PROTONIX [Concomitant]
  5. OXYCODONE HCL [Concomitant]
  6. NEXIUM [Concomitant]
  7. M.V.I. [Concomitant]
  8. MAGNESIUM [Concomitant]
  9. IRON [Concomitant]

REACTIONS (5)
  - BACK PAIN [None]
  - BLOOD GLUCOSE INCREASED [None]
  - CATHETER SITE INFECTION [None]
  - EXTRADURAL ABSCESS [None]
  - URINARY TRACT INFECTION [None]
